FAERS Safety Report 8542020-1 (Version None)
Quarter: 2012Q3

REPORT INFORMATION
  Report Type: 
  Country: None (occurrence: None)
  Receive Date: 20120726
  Receipt Date: 20110928
  Transmission Date: 20120928
  Serious: No
  Sender: FDA-Public Use
  Company Number: US-ASTRAZENECA-2011SE58948

PATIENT
  Sex: Male

DRUGS (16)
  1. DONEPEZIL HCL [Concomitant]
  2. DOK [Concomitant]
  3. EAR DROPS [Concomitant]
  4. FIBER BASICS [Concomitant]
  5. LISINOPRIL [Suspect]
     Route: 048
  6. FISH OIL [Concomitant]
  7. MAPAP ARTHRITIS [Concomitant]
  8. NON-ASA (APAP) [Concomitant]
  9. OMEPRAZOLE [Suspect]
     Route: 048
  10. IPRAT-ALBUT [Concomitant]
  11. SEROQUEL [Suspect]
     Route: 048
  12. ETODOLAC [Concomitant]
  13. FLUOXETINE HCL [Concomitant]
  14. ASPIRIN [Concomitant]
  15. FAMOTIDINE [Concomitant]
  16. GABAPENTIN [Concomitant]

REACTIONS (4)
  - DEMENTIA [None]
  - OSTEOARTHRITIS [None]
  - GASTRITIS [None]
  - DEPRESSION [None]
